FAERS Safety Report 5755482-X (Version None)
Quarter: 2008Q2

REPORT INFORMATION
  Report Type: 
  Country: None (occurrence: None)
  Receive Date: 20080602
  Receipt Date: 20080521
  Transmission Date: 20081010
  Serious: Yes (Hospitalization)
  Sender: FDA-Public Use
  Company Number: US-SANOFI-SYNTHELABO-A03200801968

PATIENT
  Sex: Female

DRUGS (29)
  1. AMBIEN CR [Suspect]
     Indication: PAIN
     Route: 048
     Dates: end: 20070319
  2. ZANAFLEX [Concomitant]
     Indication: DRUG USE FOR UNKNOWN INDICATION
     Dosage: UNK
     Route: 048
     Dates: end: 20070320
  3. ZANAFLEX [Concomitant]
     Route: 048
     Dates: start: 20070325, end: 20070325
  4. CYMBALTA [Concomitant]
     Indication: DRUG USE FOR UNKNOWN INDICATION
     Dosage: UNK
     Route: 048
     Dates: end: 20070319
  5. CYMBALTA [Concomitant]
     Route: 048
     Dates: start: 20070325, end: 20070325
  6. DILAUDID [Suspect]
     Indication: PAIN
     Route: 048
  7. DILAUDID [Suspect]
     Dosage: UNK
     Route: 065
     Dates: end: 20070301
  8. XANAX [Suspect]
     Indication: DRUG USE FOR UNKNOWN INDICATION
     Route: 048
  9. XANAX [Suspect]
     Route: 048
     Dates: end: 20070320
  10. XANAX [Suspect]
     Dosage: UNK
     Route: 048
     Dates: start: 20050711, end: 20060701
  11. XANAX [Suspect]
     Dosage: UNK
     Route: 048
     Dates: start: 20060925
  12. FENTORA [Suspect]
     Indication: PAIN
     Route: 002
     Dates: start: 20061027, end: 20061221
  13. FENTORA [Suspect]
     Route: 002
     Dates: start: 20061221, end: 20070320
  14. DEMEROL [Suspect]
     Indication: PAIN
     Dosage: 50 MG EVERY 6 HOURS AS NEEDED
     Route: 048
     Dates: end: 20070301
  15. ACTIQ [Suspect]
     Indication: HEADACHE
     Route: 002
     Dates: start: 20060216, end: 20070320
  16. ACTIQ [Suspect]
     Indication: TRIGEMINAL NEURALGIA
     Route: 002
     Dates: start: 20060216, end: 20070320
  17. ACTIQ [Suspect]
     Indication: FIBROMYALGIA
     Route: 002
     Dates: start: 20060216, end: 20070320
  18. ACTIQ [Suspect]
     Dosage: 600 MCG THREE TIMES DAILY AS NEEDED
     Route: 002
     Dates: start: 20040707, end: 20050502
  19. ACTIQ [Suspect]
     Dosage: 600 MCG THREE TIMES DAILY AS NEEDED
     Route: 002
     Dates: start: 20040707, end: 20050502
  20. ACTIQ [Suspect]
     Dosage: 600 MCG THREE TIMES DAILY AS NEEDED
     Route: 002
     Dates: start: 20040707, end: 20050502
  21. ACTIQ [Suspect]
     Dosage: UNK
     Route: 002
     Dates: start: 20050502
  22. ACTIQ [Suspect]
     Dosage: UNK
     Route: 002
     Dates: start: 20050502
  23. ACTIQ [Suspect]
     Dosage: UNK
     Route: 002
     Dates: start: 20050502
  24. ACTIQ [Suspect]
     Dosage: UNK
     Route: 002
     Dates: start: 20040820, end: 20061102
  25. ACTIQ [Suspect]
     Dosage: UNK
     Route: 002
     Dates: start: 20040820, end: 20061102
  26. ACTIQ [Suspect]
     Dosage: UNK
     Route: 002
     Dates: start: 20040820, end: 20061102
  27. ACTIQ [Suspect]
     Dosage: UNK
     Route: 002
     Dates: start: 20070129
  28. ACTIQ [Suspect]
     Dosage: UNK
     Route: 002
     Dates: start: 20070129
  29. ACTIQ [Suspect]
     Dosage: UNK
     Route: 002
     Dates: start: 20070129

REACTIONS (8)
  - DENTAL CARIES [None]
  - DEPRESSION [None]
  - NAUSEA [None]
  - PANIC ATTACK [None]
  - SLEEP DISORDER [None]
  - SUBSTANCE ABUSE [None]
  - TREMOR [None]
  - WITHDRAWAL SYNDROME [None]
